FAERS Safety Report 21597400 (Version 1)
Quarter: 2022Q4

REPORT INFORMATION
  Report Type: Spontaneous
  Country: US (occurrence: None)
  Receive Date: 20221114
  Receipt Date: 20221114
  Transmission Date: 20230112
  Serious: Yes (Other)
  Sender: FDA-Public Use
  Company Number: None

PATIENT
  Age: 51 Year
  Sex: Female
  Weight: 115.21 kg

DRUGS (1)
  1. NURTEC ODT [Suspect]
     Active Substance: RIMEGEPANT SULFATE
     Indication: Migraine
     Dosage: FREQUENCY : AS NEEDED;?OTHER ROUTE : TRANSLINGUAL;?
     Route: 050
     Dates: start: 20221105, end: 20221114

REACTIONS (2)
  - Abdominal discomfort [None]
  - Vomiting [None]

NARRATIVE: CASE EVENT DATE: 20221105
